FAERS Safety Report 23571332 (Version 5)
Quarter: 2025Q3

REPORT INFORMATION
  Report Type: Report from Study
  Country: JP (occurrence: JP)
  Receive Date: 20240227
  Receipt Date: 20250914
  Transmission Date: 20251020
  Serious: Yes (Other)
  Sender: ALEXION PHARMACEUTICALS
  Company Number: 2024A044418

PATIENT
  Age: 48 Year
  Sex: Female
  Weight: 57 kg

DRUGS (4)
  1. OLAPARIB [Suspect]
     Active Substance: OLAPARIB
     Indication: Breast cancer
     Dates: start: 20231110, end: 20240213
  2. OLAPARIB [Suspect]
     Active Substance: OLAPARIB
     Dates: start: 20240419, end: 20241129
  3. CELESTAMINE [Suspect]
     Active Substance: BETAMETHASONE\DEXCHLORPHENIRAMINE MALEATE
     Indication: Dermatitis atopic
     Dates: end: 20240221
  4. CELESTAMINE [Suspect]
     Active Substance: BETAMETHASONE\DEXCHLORPHENIRAMINE MALEATE
     Indication: Breast cancer

REACTIONS (2)
  - Interstitial lung disease [Unknown]
  - Lymphocyte count decreased [Recovering/Resolving]

NARRATIVE: CASE EVENT DATE: 20240101
